FAERS Safety Report 25996067 (Version 1)
Quarter: 2025Q4

REPORT INFORMATION
  Report Type: Spontaneous
  Country: CN (occurrence: CN)
  Receive Date: 20251104
  Receipt Date: 20251104
  Transmission Date: 20260118
  Serious: Yes (Hospitalization)
  Sender: ELI LILLY AND COMPANY
  Company Number: CN-ELI_LILLY_AND_COMPANY-CN202510030957

PATIENT
  Age: 44 Year
  Sex: Male
  Weight: 52 kg

DRUGS (2)
  1. ABEMACICLIB [Suspect]
     Active Substance: ABEMACICLIB
     Indication: Liposarcoma
     Dosage: 150 MG, BID
     Route: 048
     Dates: start: 20250815, end: 20251009
  2. PENPULIMAB [Suspect]
     Active Substance: PENPULIMAB
     Indication: Liposarcoma
     Dosage: 200 MG, OTHER (ONCE EVERY 21 DAYS )
     Route: 041
     Dates: start: 20250717, end: 20250828

REACTIONS (4)
  - Electrolyte imbalance [Recovering/Resolving]
  - Diarrhoea [Recovering/Resolving]
  - Decreased appetite [Recovering/Resolving]
  - Vomiting [Recovering/Resolving]

NARRATIVE: CASE EVENT DATE: 20251001
